FAERS Safety Report 26162996 (Version 1)
Quarter: 2025Q4

REPORT INFORMATION
  Report Type: Spontaneous
  Country: US (occurrence: None)
  Receive Date: 20251215
  Receipt Date: 20251215
  Transmission Date: 20260117
  Serious: No
  Sender: FDA-CTU
  Company Number: None

PATIENT
  Age: 70 Year
  Sex: Female

DRUGS (11)
  1. NUCALA [Suspect]
     Active Substance: MEPOLIZUMAB
     Indication: Asthma
     Dosage: FREQUENCY : MONTHLY;
     Route: 058
     Dates: start: 20250712
  2. DILTIAZEM CD 120MG CAPSULES (24 HR) [Concomitant]
  3. FLECAINIDE ACETATE [Concomitant]
     Active Substance: FLECAINIDE ACETATE
  4. CITALOPRAM 10MG TABLETS [Concomitant]
  5. ACETAMINOPHEN\OXYCODONE HYDROCHLORIDE [Concomitant]
     Active Substance: ACETAMINOPHEN\OXYCODONE HYDROCHLORIDE
  6. MOVANTIK 12.SMG TABLETS [Concomitant]
  7. MOVANTIK 12.SMG TABLETS [Concomitant]
  8. AMIODARONE [Concomitant]
     Active Substance: AMIODARONE
  9. PANTOPRAZOLE [Concomitant]
     Active Substance: PANTOPRAZOLE
  10. FORMOTEROL 20MCG INH SOL 30X2ML [Concomitant]
  11. ELIQUIS [Concomitant]
     Active Substance: APIXABAN

REACTIONS (1)
  - Pneumonia [None]

NARRATIVE: CASE EVENT DATE: 20251206
